FAERS Safety Report 15967648 (Version 1)
Quarter: 2019Q1

REPORT INFORMATION
  Report Type: Spontaneous
  Country: US (occurrence: US)
  Receive Date: 20190215
  Receipt Date: 20190215
  Transmission Date: 20190418
  Serious: Yes (Disabling, Other)
  Sender: FDA-Public Use
  Company Number: None

PATIENT
  Age: 71 Year
  Sex: Male
  Weight: 80.1 kg

DRUGS (1)
  1. JANUVIA [Suspect]
     Active Substance: SITAGLIPTIN PHOSPHATE
     Indication: DIABETES MELLITUS INADEQUATE CONTROL
     Dosage: ?          QUANTITY:1 TABLET(S);?
     Route: 048
     Dates: start: 20190111, end: 20190211

REACTIONS (6)
  - White blood cell count increased [None]
  - Glycosylated haemoglobin increased [None]
  - Drug hypersensitivity [None]
  - Cough [None]
  - Bronchitis [None]
  - Wheezing [None]

NARRATIVE: CASE EVENT DATE: 20190111
